FAERS Safety Report 6283353-1 (Version None)
Quarter: 2009Q3

REPORT INFORMATION
  Report Type: 
  Country: None (occurrence: None)
  Receive Date: 20090724
  Receipt Date: 20090721
  Transmission Date: 20100115
  Serious: Yes (Other)
  Sender: FDA-Public Use
  Company Number: DE-JNJCH-2009019876

PATIENT
  Sex: Female

DRUGS (1)
  1. REGAINE FRAUEN [Suspect]
     Indication: DRUG USE FOR UNKNOWN INDICATION
     Dosage: TEXT:UNSPECIFIED
     Route: 061

REACTIONS (5)
  - ECZEMA EYELIDS [None]
  - EYE SWELLING [None]
  - OCULAR HYPERAEMIA [None]
  - PRURITUS [None]
  - SCAB [None]
